FAERS Safety Report 5638808-7 (Version None)
Quarter: 2008Q1

REPORT INFORMATION
  Report Type: 
  Country: None (occurrence: None)
  Receive Date: 20080226
  Receipt Date: 20071217
  Transmission Date: 20080703
  Serious: Yes (Death, Hospitalization)
  Sender: FDA-Public Use
  Company Number: PHBS2007CN21715

PATIENT
  Age: 47 Year
  Sex: Male

DRUGS (2)
  1. SEBIVO [Suspect]
     Indication: HEPATITIS B
     Dosage: 600 MG, QD
     Route: 048
     Dates: start: 20070220
  2. TRADITIONAL CHINESE MEDICATION [Concomitant]

REACTIONS (5)
  - DECREASED APPETITE [None]
  - DISEASE PROGRESSION [None]
  - HEPATIC NEOPLASM MALIGNANT [None]
  - PYREXIA [None]
  - TRANSAMINASES INCREASED [None]
